FAERS Safety Report 24358523 (Version 2)
Quarter: 2024Q4

REPORT INFORMATION
  Report Type: Spontaneous
  Country: US (occurrence: US)
  Receive Date: 20240924
  Receipt Date: 20241205
  Transmission Date: 20250115
  Serious: No
  Sender: Kenvue
  Company Number: US-JNJFOC-20240933714

PATIENT
  Sex: Female

DRUGS (2)
  1. IMODIUM MULTI-SYMPTOM RELIEF [Suspect]
     Active Substance: DIMETHICONE\LOPERAMIDE HYDROCHLORIDE
     Indication: Irritable bowel syndrome
     Dosage: 3-4 DAILY
     Route: 048
     Dates: start: 202302
  2. IMODIUM MULTI-SYMPTOM RELIEF [Suspect]
     Active Substance: DIMETHICONE\LOPERAMIDE HYDROCHLORIDE
     Indication: Diver^s cramp

REACTIONS (6)
  - Vomiting [Unknown]
  - Retching [Unknown]
  - Choking sensation [Unknown]
  - Off label use [Unknown]
  - Product quality issue [Unknown]
  - Therapeutic response unexpected [Unknown]
